FAERS Safety Report 12865842 (Version 4)
Quarter: 2016Q4

REPORT INFORMATION
  Report Type: Spontaneous
  Country: US (occurrence: US)
  Receive Date: 20161020
  Receipt Date: 20161208
  Transmission Date: 20170207
  Serious: No
  Sender: FDA-Public Use
  Company Number: US-PFIZER INC-2016489981

PATIENT
  Age: 57 Year
  Sex: Female
  Weight: 85 kg

DRUGS (22)
  1. AZATHIOPRINE. [Concomitant]
     Active Substance: AZATHIOPRINE
     Indication: CONNECTIVE TISSUE DISORDER
  2. FLUCONAZOLE. [Concomitant]
     Active Substance: FLUCONAZOLE
     Indication: INFECTION PROPHYLAXIS
     Dosage: 100MG TABLET BY MOUTH ONCE A WEEK
     Dates: start: 201604
  3. LYRICA [Suspect]
     Active Substance: PREGABALIN
     Indication: FIBROMYALGIA
     Dosage: 75 MG, 2X/DAY
     Route: 048
     Dates: start: 20161009
  4. PLAQUENIL [Concomitant]
     Active Substance: HYDROXYCHLOROQUINE SULFATE
     Indication: CONNECTIVE TISSUE DISORDER
     Dosage: 200 MG, 2X/DAY
     Dates: start: 2010
  5. DOXYCYCLINE. [Concomitant]
     Active Substance: DOXYCYCLINE
     Indication: CONNECTIVE TISSUE DISORDER
  6. AZATHIOPRINE. [Concomitant]
     Active Substance: AZATHIOPRINE
     Indication: IMMUNE SYSTEM DISORDER
     Dosage: 50 MG, 2X/DAY
     Route: 048
     Dates: start: 2011
  7. DOXYCYCLINE. [Concomitant]
     Active Substance: DOXYCYCLINE
     Indication: IMMUNE SYSTEM DISORDER
     Dosage: 100 MG, DAILY
     Route: 048
     Dates: start: 2015
  8. LYRICA [Suspect]
     Active Substance: PREGABALIN
     Dosage: 12.5 MG, 2X/DAY
     Route: 048
  9. PLAQUINOL [Concomitant]
     Active Substance: HYDROXYCHLOROQUINE SULFATE
     Indication: IMMUNE SYSTEM DISORDER
     Dosage: 200 MG, 2X/DAY
     Route: 048
     Dates: start: 2011
  10. MOBIC [Concomitant]
     Active Substance: MELOXICAM
     Indication: PAIN
     Dosage: 15 MG, 1X/DAY
     Route: 048
     Dates: start: 2014
  11. MOBIC [Concomitant]
     Active Substance: MELOXICAM
     Indication: CONNECTIVE TISSUE DISORDER
     Dosage: 15 MG, 4X/DAY
     Route: 048
     Dates: start: 2015
  12. ZYRTEC [Concomitant]
     Active Substance: CETIRIZINE HYDROCHLORIDE
     Indication: HYPERSENSITIVITY
     Dosage: 10 MG, DAILY
     Route: 048
  13. IMURAN [Concomitant]
     Active Substance: AZATHIOPRINE
     Indication: CONNECTIVE TISSUE DISORDER
     Dosage: 50 MG, 2X/DAY
     Dates: start: 2011
  14. LYRICA [Suspect]
     Active Substance: PREGABALIN
     Dosage: DROPPED THE A.M. DOSE TO 50MG X 2 DAYS
     Route: 048
  15. CRESTOR [Concomitant]
     Active Substance: ROSUVASTATIN CALCIUM
     Indication: BLOOD CHOLESTEROL ABNORMAL
     Dosage: 5 MG, DAILY
     Route: 048
     Dates: start: 201610
  16. SINGULAIR [Concomitant]
     Active Substance: MONTELUKAST SODIUM
     Indication: HYPERSENSITIVITY
     Dosage: 10 MG, DAILY
     Route: 048
  17. LYRICA [Suspect]
     Active Substance: PREGABALIN
     Indication: NEURALGIA
     Dosage: 75 MG, 2X/DAY (8 AM AND 6 PM)
     Route: 048
     Dates: start: 20161010
  18. LYRICA [Suspect]
     Active Substance: PREGABALIN
     Dosage: 75 MG, 2X/DAY
     Route: 048
     Dates: start: 20161014
  19. PLAQUINOL [Concomitant]
     Active Substance: HYDROXYCHLOROQUINE SULFATE
     Indication: CONNECTIVE TISSUE DISORDER
  20. LYRICA [Suspect]
     Active Substance: PREGABALIN
     Dosage: A HALF DOSE IN THE MORNING AND A HALF DOSE AT NIGHT
     Route: 048
     Dates: start: 20161013
  21. LYRICA [Suspect]
     Active Substance: PREGABALIN
     Dosage: INCREASED TO 75 MG AM  DOSE
     Route: 048
  22. LYRICA [Suspect]
     Active Substance: PREGABALIN
     Dosage: REDUCED AM DOSE TO 50 MG
     Route: 048
     Dates: start: 20161022

REACTIONS (8)
  - Euphoric mood [Recovered/Resolved]
  - Weight increased [Not Recovered/Not Resolved]
  - Intentional product misuse [Unknown]
  - Memory impairment [Not Recovered/Not Resolved]
  - Pre-existing condition improved [Unknown]
  - Increased appetite [Not Recovered/Not Resolved]
  - Thinking abnormal [Not Recovered/Not Resolved]
  - Therapeutic response unexpected [Unknown]

NARRATIVE: CASE EVENT DATE: 20161010
